FAERS Safety Report 14416228 (Version 3)
Quarter: 2018Q1

REPORT INFORMATION
  Report Type: Report from Study
  Country: DE (occurrence: DE)
  Receive Date: 20180122
  Receipt Date: 20180306
  Transmission Date: 20180509
  Serious: Yes (Death, Life-Threatening, Hospitalization)
  Sender: FDA-Public Use
  Company Number: DE-ROCHE-2056629

PATIENT
  Age: 65 Year
  Sex: Female

DRUGS (2)
  1. PLACEBO [Suspect]
     Active Substance: UNSPECIFIED INGREDIENT
     Indication: OVARIAN CANCER
     Route: 048
     Dates: start: 20170412, end: 20180112
  2. BEVACIZUMAB. [Suspect]
     Active Substance: BEVACIZUMAB
     Indication: OVARIAN CANCER
     Dosage: LAST DOSE PRIOR TO SAE 04/JAN/2018?AT THE TIME OF DEATH, DRUG ADMINISTRATION WAS NOT ALTERED?15 MG/K
     Route: 042
     Dates: start: 20170419, end: 20180112

REACTIONS (2)
  - Cardiac arrest [Not Recovered/Not Resolved]
  - Small intestinal perforation [Fatal]

NARRATIVE: CASE EVENT DATE: 20180111
